FAERS Safety Report 12317438 (Version 1)
Quarter: 2016Q2

REPORT INFORMATION
  Report Type: Spontaneous
  Country: US (occurrence: US)
  Receive Date: 20160429
  Receipt Date: 20160429
  Transmission Date: 20160815
  Serious: No
  Sender: FDA-Public Use
  Company Number: US-PFIZER INC-2016218266

PATIENT
  Age: 32 Year
  Sex: Female

DRUGS (4)
  1. RIFABUTIN. [Suspect]
     Active Substance: RIFABUTIN
     Indication: ABDOMINAL DISCOMFORT
     Dosage: UNK
  2. ETHAMBUTOL [Concomitant]
     Active Substance: ETHAMBUTOL HYDROCHLORIDE
     Indication: ATYPICAL MYCOBACTERIAL INFECTION
     Dosage: UNK
  3. LEVOFLOXACIN. [Concomitant]
     Active Substance: LEVOFLOXACIN
     Indication: ABDOMINAL DISCOMFORT
     Dosage: UNK
  4. TACROLIMUS. [Concomitant]
     Active Substance: TACROLIMUS
     Dosage: UNK

REACTIONS (2)
  - Rash maculo-papular [Unknown]
  - Drug hypersensitivity [Unknown]
